FAERS Safety Report 17321515 (Version 3)
Quarter: 2020Q1

REPORT INFORMATION
  Report Type: Spontaneous
  Country: JP (occurrence: JP)
  Receive Date: 20200126
  Receipt Date: 20200225
  Transmission Date: 20200409
  Serious: Yes (Other)
  Sender: FDA-Public Use
  Company Number: JP-PFIZER INC-2020035587

PATIENT
  Age: 90 Year
  Sex: Male

DRUGS (3)
  1. CELECOX [Suspect]
     Active Substance: CELECOXIB
     Indication: OSTEOARTHRITIS
     Dosage: 200 MG/DAY, 100 MG TABLET WITH 2 TABLETS DAILY
     Route: 048
     Dates: start: 20190801, end: 20200120
  2. VITAMINS NOS [Concomitant]
     Active Substance: VITAMINS
     Dosage: 5 ?G/DAY, UNKNOWN FREQ.
     Route: 048
  3. SHAKUYAKUKANZOTO [Concomitant]
     Active Substance: HERBALS
     Dosage: UNK UNK, UNKNOWN FREQ.
     Route: 048

REACTIONS (1)
  - Hallucination, auditory [Unknown]

NARRATIVE: CASE EVENT DATE: 201912
